FAERS Safety Report 16882115 (Version 3)
Quarter: 2020Q3

REPORT INFORMATION
  Report Type: Report from Study
  Country: JP (occurrence: JP)
  Receive Date: 20191003
  Receipt Date: 20200917
  Transmission Date: 20201102
  Serious: Yes (Other)
  Sender: FDA-Public Use
  Company Number: JP-VIIV HEALTHCARE LIMITED-JP2019JPN178252

PATIENT
  Age: 24 Year
  Sex: Male

DRUGS (3)
  1. RUPAFIN [Concomitant]
     Active Substance: RUPATADINE FUMARATE
     Indication: SEASONAL ALLERGY
     Dosage: UNK
     Dates: start: 20190120, end: 20190219
  2. DOLUTEGRAVIR [Suspect]
     Active Substance: DOLUTEGRAVIR
     Indication: HIV INFECTION
     Dosage: 50 MG, 1D
     Route: 048
     Dates: start: 20180827
  3. DESCOVY [Suspect]
     Active Substance: EMTRICITABINE\TENOFOVIR ALAFENAMIDE FUMARATE
     Indication: HIV INFECTION
     Dosage: 1 DF, 1D
     Route: 048
     Dates: start: 20180827

REACTIONS (6)
  - Stomatitis [Recovering/Resolving]
  - Syphilis [Recovering/Resolving]
  - Acne [Recovering/Resolving]
  - Stomatitis [Recovering/Resolving]
  - Tonsillitis [Recovering/Resolving]
  - Oral herpes [Recovering/Resolving]

NARRATIVE: CASE EVENT DATE: 20181107
